FAERS Safety Report 8204533-1 (Version None)
Quarter: 2012Q1

REPORT INFORMATION
  Report Type: 
  Country: None (occurrence: None)
  Receive Date: 20120313
  Receipt Date: 20120307
  Transmission Date: 20120608
  Serious: Yes (Other)
  Sender: FDA-Public Use
  Company Number: CH-PFIZER INC-2012054488

PATIENT
  Sex: Male

DRUGS (1)
  1. LYRICA [Suspect]
     Dosage: 125 MG, 1X/DAY

REACTIONS (8)
  - DIZZINESS [None]
  - DRUG WITHDRAWAL SYNDROME [None]
  - DEPRESSION [None]
  - SLEEP DISORDER [None]
  - HYPERHIDROSIS [None]
  - DRUG INEFFECTIVE [None]
  - HYPERTENSION [None]
  - HEADACHE [None]
